FAERS Safety Report 20038295 (Version 13)
Quarter: 2022Q4

REPORT INFORMATION
  Report Type: Report from Study
  Country: US (occurrence: US)
  Receive Date: 20211105
  Receipt Date: 20221123
  Transmission Date: 20230113
  Serious: No
  Sender: FDA-Public Use
  Company Number: US-NOVARTISTESTPH-NVSC2021US252735

PATIENT
  Age: 53 Year
  Sex: Female
  Weight: 79.379 kg

DRUGS (1)
  1. KESIMPTA [Suspect]
     Active Substance: OFATUMUMAB
     Indication: Product used for unknown indication
     Dosage: 20 MG, QMO
     Route: 058
     Dates: start: 20211019

REACTIONS (15)
  - Feeling hot [Recovered/Resolved]
  - Hypoaesthesia [Recovered/Resolved]
  - Dizziness [Unknown]
  - Hyporeflexia [Unknown]
  - Muscle spasms [Unknown]
  - Disturbance in attention [Unknown]
  - Abdominal discomfort [Recovering/Resolving]
  - Feeling hot [Recovering/Resolving]
  - Headache [Recovered/Resolved]
  - Injection site pain [Unknown]
  - Injection site bruising [Recovered/Resolved]
  - Blood pressure increased [Unknown]
  - Incorrect dose administered by device [Unknown]
  - Accidental exposure to product [Unknown]
  - Wrong technique in device usage process [Unknown]

NARRATIVE: CASE EVENT DATE: 20211019
